FAERS Safety Report 11292008 (Version 2)
Quarter: 2017Q4

REPORT INFORMATION
  Report Type: Spontaneous
  Country: GB (occurrence: GB)
  Receive Date: 20150722
  Receipt Date: 20171214
  Transmission Date: 20180320
  Serious: Yes (Hospitalization)
  Sender: FDA-Public Use
  Company Number: PHHY2015GB083403

PATIENT
  Age: 67 Year
  Sex: Male
  Weight: 70.7 kg

DRUGS (19)
  1. DOXORUBICIN [Suspect]
     Active Substance: DOXORUBICIN
     Dosage: 95 MG, UNK
     Route: 042
  2. MABTHERA [Suspect]
     Active Substance: RITUXIMAB
     Indication: DIFFUSE LARGE B-CELL LYMPHOMA
     Dosage: 700 MG, UNK
     Route: 042
     Dates: start: 20090716, end: 20090827
  3. CYCLOPHOSPHAMIDE. [Suspect]
     Active Substance: CYCLOPHOSPHAMIDE
     Dosage: 700 MG, UNK
     Route: 042
  4. PREDNISOLONE. [Suspect]
     Active Substance: PREDNISOLONE
     Dosage: 100 MG, FREQUENTLY REPORTED AS 3 WEEKLY
     Route: 048
  5. ALLOPURINOL. [Concomitant]
     Active Substance: ALLOPURINOL
     Indication: PRODUCT USED FOR UNKNOWN INDICATION
     Route: 065
  6. PARACETAMOL [Concomitant]
     Active Substance: ACETAMINOPHEN
     Indication: PRODUCT USED FOR UNKNOWN INDICATION
     Dosage: TDD REPORTED: 1 GRAM PRN
     Route: 065
  7. METOCLOPRAMIDE. [Concomitant]
     Active Substance: METOCLOPRAMIDE
     Indication: PRODUCT USED FOR UNKNOWN INDICATION
     Route: 065
  8. CYCLOPHOSPHAMIDE. [Suspect]
     Active Substance: CYCLOPHOSPHAMIDE
     Route: 042
     Dates: start: 20090716, end: 20090827
  9. PREDNISOLONE. [Suspect]
     Active Substance: PREDNISOLONE
     Dosage: 100 MG, PO,DOSAGE FORM:INFUSION + ORALLY; DATE OF LAST DOSE PRIOR TO SAE: 21 MAY 2009
     Route: 048
  10. VINCRISTINE [Suspect]
     Active Substance: VINCRISTINE
     Dosage: 2 MG, UNK
     Route: 042
  11. VINCRISTINE [Suspect]
     Active Substance: VINCRISTINE
     Route: 042
     Dates: start: 20090716, end: 20090827
  12. AVASTIN [Suspect]
     Active Substance: BEVACIZUMAB
     Indication: DIFFUSE LARGE B-CELL LYMPHOMA
     Route: 042
     Dates: start: 20090716, end: 20090827
  13. DOXORUBICIN [Suspect]
     Active Substance: DOXORUBICIN
     Indication: DIFFUSE LARGE B-CELL LYMPHOMA
     Route: 042
     Dates: start: 20090716, end: 20090827
  14. DOXORUBICIN [Suspect]
     Active Substance: DOXORUBICIN
     Dosage: 96 MG, ROUTE:IV + PO,DOSAGE FORM:INFUSION + ORALLY; DATE OF LAST DOSE PRIOR TO SAE: 21 MAY 2009
     Route: 042
  15. VINCRISTINE [Suspect]
     Active Substance: VINCRISTINE
     Indication: DIFFUSE LARGE B-CELL LYMPHOMA
     Dosage: INFUSION + ORALLY; DATE OF LAST DOSE PRIOR TO SAE: 21 MAY 2009
     Route: 042
  16. MABTHERA [Suspect]
     Active Substance: RITUXIMAB
     Dosage: 700 MG, INFUSION,DATE OF LAST DOSE PRIOR TO SAE: 21 MAY 2009
     Route: 042
  17. CYCLOPHOSPHAMIDE. [Suspect]
     Active Substance: CYCLOPHOSPHAMIDE
     Indication: DIFFUSE LARGE B-CELL LYMPHOMA
     Dosage: 1450 MG, ROUTE:IV + PO,DOSAGE FORM:INFUSION+ORALLY; DATE OF LAST DOSE PRIOR TO SAE:21 MAY 2009)
     Route: 042
  18. PREDNISOLONE. [Suspect]
     Active Substance: PREDNISOLONE
     Indication: DIFFUSE LARGE B-CELL LYMPHOMA
     Route: 048
     Dates: start: 20090716, end: 20090827
  19. MABTHERA [Suspect]
     Active Substance: RITUXIMAB
     Dosage: 700 MG, UNK
     Route: 042

REACTIONS (2)
  - Febrile neutropenia [Recovered/Resolved]
  - Sepsis [Recovered/Resolved]

NARRATIVE: CASE EVENT DATE: 20090420
